FAERS Safety Report 5217151-4 (Version None)
Quarter: 2007Q1

REPORT INFORMATION
  Report Type: 
  Country: None (occurrence: None)
  Receive Date: 20070124
  Receipt Date: 20070123
  Transmission Date: 20070707
  Serious: Yes (Other)
  Sender: FDA-Public Use
  Company Number: US-GLAXOSMITHKLINE-A0620816A

PATIENT
  Age: 41 Year
  Sex: Female
  Weight: 64.5 kg

DRUGS (4)
  1. BC HEADACHE POWDER [Suspect]
     Indication: ILL-DEFINED DISORDER
     Dates: start: 19770101
  2. ZEPHREX LA [Concomitant]
     Dosage: 1TAB TWICE PER DAY
  3. LITHIUM CARBONATE [Concomitant]
     Dosage: 400MG TWICE PER DAY
  4. XANAX [Concomitant]
     Dosage: 1MG THREE TIMES PER DAY

REACTIONS (8)
  - ANOREXIA [None]
  - BRONCHITIS [None]
  - DEPENDENCE [None]
  - MALAISE [None]
  - NASOPHARYNGITIS [None]
  - NAUSEA [None]
  - PHARMACEUTICAL PRODUCT COMPLAINT [None]
  - RHINITIS ALLERGIC [None]
